FAERS Safety Report 4320223-X (Version None)
Quarter: 2004Q1

REPORT INFORMATION
  Report Type: 
  Country: None (occurrence: None)
  Receive Date: 20040317
  Receipt Date: 20040303
  Transmission Date: 20041129
  Serious: Yes (Death, Disabling)
  Sender: FDA-Public Use
  Company Number: 2004AP01313

PATIENT
  Age: 65 Year
  Sex: Female

DRUGS (12)
  1. IRESSA [Suspect]
     Indication: CARCINOMA
     Dosage: 250 MG DAILY PO
     Route: 048
     Dates: start: 20031121, end: 20031208
  2. IRESSA [Suspect]
     Indication: NON-SMALL CELL LUNG CANCER RECURRENT
     Dosage: 250 MG DAILY PO
     Route: 048
     Dates: start: 20031121, end: 20031208
  3. LOXONIN [Concomitant]
  4. SELBEX [Concomitant]
  5. CYANOCOBALAMIN [Concomitant]
  6. EVAMYL [Concomitant]
  7. CODEINE PHOSPHATE [Concomitant]
  8. CARBOPLATIN [Concomitant]
  9. PACLITAXEL [Concomitant]
  10. GEMCITABINE [Concomitant]
  11. VINORELBINE TARTRATE [Concomitant]
  12. RADIOTHERAPY [Concomitant]

REACTIONS (5)
  - CHEST X-RAY ABNORMAL [None]
  - DRUG INEFFECTIVE [None]
  - LUNG DISORDER [None]
  - OXYGEN SATURATION DECREASED [None]
  - RENAL FAILURE [None]
